FAERS Safety Report 18266781 (Version 1)
Quarter: 2020Q3

REPORT INFORMATION
  Report Type: Spontaneous
  Country: US (occurrence: US)
  Receive Date: 20200514
  Receipt Date: 20200514
  Transmission Date: 20201103
  Serious: No
  Sender: FDA-Public Use
  Company Number: None

PATIENT
  Sex: Male

DRUGS (4)
  1. LINEZOLID. [Suspect]
     Active Substance: LINEZOLID
  2. GANCICLOVIR. [Suspect]
     Active Substance: GANCICLOVIR
  3. OSELTAMIVIR [Suspect]
     Active Substance: OSELTAMIVIR
  4. MEROPENEM. [Suspect]
     Active Substance: MEROPENEM
     Indication: COVID-19
     Dates: start: 2020

REACTIONS (2)
  - Product use in unapproved indication [None]
  - Product use issue [None]
